FAERS Safety Report 7815290-2 (Version None)
Quarter: 2011Q4

REPORT INFORMATION
  Report Type: 
  Country: None (occurrence: None)
  Receive Date: 20111014
  Receipt Date: 20111008
  Transmission Date: 20120403
  Serious: Yes (Other)
  Sender: FDA-Public Use
  Company Number: US-TEVA-304301USA

PATIENT
  Age: 63 Year
  Sex: Female

DRUGS (4)
  1. ESCITALOPRAM OXALATE [Interacting]
     Dosage: 20 MILLIGRAM;
     Route: 048
     Dates: end: 20110801
  2. FLUCONAZOLE [Suspect]
     Indication: FUNGAL INFECTION
     Route: 048
     Dates: start: 20110812, end: 20110901
  3. DEPLIN (CALCIUM LEVOMEFOLATE) (CALCIUM LEVOMEFOLATE) [Concomitant]
     Indication: DEPRESSION
  4. ESCITALOPRAM OXALATE [Interacting]
     Indication: DEPRESSION
     Dosage: 10 MILLIGRAM;
     Route: 048
     Dates: start: 20050101

REACTIONS (6)
  - PALPITATIONS [None]
  - DEPRESSION [None]
  - MANIA [None]
  - DRUG INTERACTION [None]
  - FATIGUE [None]
  - FUNGAL INFECTION [None]
